FAERS Safety Report 4457546-X (Version None)
Quarter: 2004Q3

REPORT INFORMATION
  Report Type: 
  Country: None (occurrence: None)
  Receive Date: 20040922
  Receipt Date: 20040902
  Transmission Date: 20050211
  Serious: Yes (Other)
  Sender: FDA-Public Use
  Company Number: USA040977254

PATIENT
  Sex: Female
  Weight: 103 kg

DRUGS (2)
  1. HUMALOG [Suspect]
     Dosage: 21 U DAY
  2. LANTUS [Concomitant]

REACTIONS (3)
  - BLOOD GLUCOSE INCREASED [None]
  - PERITONEAL DIALYSIS [None]
  - RENAL FAILURE [None]
